FAERS Safety Report 17324646 (Version 1)
Quarter: 2020Q1

REPORT INFORMATION
  Report Type: Spontaneous
  Country: US (occurrence: US)
  Receive Date: 20200127
  Receipt Date: 20200127
  Transmission Date: 20200409
  Serious: No
  Sender: FDA-Public Use
  Company Number: US-JNJFOC-20200131879

PATIENT
  Age: 74 Year
  Sex: Female
  Weight: 52.21 kg

DRUGS (1)
  1. REMICADE [Suspect]
     Active Substance: INFLIXIMAB
     Indication: COLITIS ULCERATIVE
     Route: 042
     Dates: start: 2014

REACTIONS (6)
  - Product dose omission [Unknown]
  - Vein collapse [Not Recovered/Not Resolved]
  - Disorientation [Unknown]
  - Malaise [Unknown]
  - Flatulence [Unknown]
  - Dehydration [Not Recovered/Not Resolved]

NARRATIVE: CASE EVENT DATE: 20200116
